FAERS Safety Report 5939893-5 (Version None)
Quarter: 2008Q4

REPORT INFORMATION
  Report Type: 
  Country: None (occurrence: None)
  Receive Date: 20081104
  Receipt Date: 20081031
  Transmission Date: 20090506
  Serious: Yes (Other)
  Sender: FDA-Public Use
  Company Number: GB-BRISTOL-MYERS SQUIBB COMPANY-14291991

PATIENT

DRUGS (1)
  1. MEGACE [Suspect]
     Dosage: RECEIVING FOR YEARS

REACTIONS (1)
  - LUNG NEOPLASM MALIGNANT [None]
